FAERS Safety Report 5787931-5 (Version None)
Quarter: 2008Q2

REPORT INFORMATION
  Report Type: 
  Country: None (occurrence: None)
  Receive Date: 20080625
  Receipt Date: 20080619
  Transmission Date: 20081010
  Serious: Yes (Life-Threatening, Other)
  Sender: FDA-Public Use
  Company Number: B0523257A

PATIENT
  Sex: Female
  Weight: 69.5 kg

DRUGS (5)
  1. TOPOTECAN [Suspect]
     Dosage: 1.3MG THREE TIMES PER WEEK
     Route: 042
     Dates: start: 20080526, end: 20080528
  2. CARBOPLATIN [Suspect]
     Dosage: 510MG THREE TIMES PER WEEK
     Route: 042
     Dates: start: 20080528, end: 20080528
  3. BISOPROLOL FUMARATE [Suspect]
     Indication: HYPERTENSION
     Dosage: 5MG PER DAY
     Dates: start: 20060501
  4. RAMIPRIL [Suspect]
     Indication: HYPERTENSION
     Dosage: 5MG PER DAY
     Dates: start: 20060501
  5. SOLU-DECORTIN [Concomitant]
     Route: 042

REACTIONS (9)
  - ANAPHYLACTIC SHOCK [None]
  - BLOOD PRESSURE IMMEASURABLE [None]
  - CIRCULATORY COLLAPSE [None]
  - CONVULSION [None]
  - DEPRESSED LEVEL OF CONSCIOUSNESS [None]
  - DYSPNOEA [None]
  - FLUSHING [None]
  - INFUSION RELATED REACTION [None]
  - MUSCLE SPASMS [None]
